FAERS Safety Report 9285354 (Version 1)
Quarter: 2013Q2

REPORT INFORMATION
  Report Type: Not Available
  Country: GB (occurrence: GB)
  Receive Date: 20130513
  Receipt Date: 20130513
  Transmission Date: 20140414
  Serious: Yes (Disabling)
  Sender: FDA-Public Use
  Company Number: GB-ASTELLAS-2013EU004047

PATIENT
  Age: 54 Year
  Sex: Female
  Weight: 78 kg

DRUGS (3)
  1. TACROLIMUS SYSTEMIC [Suspect]
     Dosage: 1 MG, BID
     Route: 048
     Dates: start: 2009, end: 201304
  2. OMEPRAZOLE [Concomitant]
     Dosage: UNK
     Route: 055
  3. PREDNISOLON                        /00016201/ [Concomitant]
     Dosage: 1 MG, UID/QD
     Route: 065

REACTIONS (7)
  - Abdominal discomfort [Recovered/Resolved]
  - Abdominal pain [Recovered/Resolved]
  - Arthralgia [Recovered/Resolved]
  - Fatigue [Recovered/Resolved]
  - Influenza like illness [Recovered/Resolved]
  - Feeling abnormal [Recovered/Resolved]
  - Uveitis [Unknown]
